FAERS Safety Report 6838991-1 (Version None)
Quarter: 2010Q3

REPORT INFORMATION
  Report Type: 
  Country: None (occurrence: None)
  Receive Date: 20100713
  Receipt Date: 20070828
  Transmission Date: 20110219
  Serious: No
  Sender: FDA-Public Use
  Company Number: US-PFIZER INC-2007041692

PATIENT
  Sex: Female

DRUGS (8)
  1. CHANTIX [Suspect]
     Indication: SMOKING CESSATION THERAPY
     Route: 048
     Dates: start: 20070513
  2. ZOLOFT [Suspect]
     Indication: DEPRESSION
     Route: 048
  3. PROZAC [Suspect]
     Indication: DEPRESSION
     Dates: start: 20070501, end: 20070501
  4. VICOPROFEN [Concomitant]
  5. CLONAZEPAM [Concomitant]
  6. VITAMIN C [Concomitant]
  7. VITAMIN E [Concomitant]
  8. MULTIPLE VITAMINS [Concomitant]

REACTIONS (3)
  - DEPRESSION [None]
  - DRUG INEFFECTIVE [None]
  - TOBACCO USER [None]
